FAERS Safety Report 4885214-9 (Version None)
Quarter: 2006Q1

REPORT INFORMATION
  Report Type: 
  Country: None (occurrence: None)
  Receive Date: 20060119
  Receipt Date: 20060109
  Transmission Date: 20060701
  Serious: Yes (Hospitalization)
  Sender: FDA-Public Use
  Company Number: FR-BRISTOL-MYERS SQUIBB COMPANY-13243670

PATIENT
  Sex: Male

DRUGS (6)
  1. ABILIFY [Suspect]
     Indication: SCHIZOPHRENIA
     Route: 048
     Dates: start: 20050530, end: 20050727
  2. TEMESTA [Concomitant]
     Indication: ANXIETY
     Dates: start: 19970101
  3. RISPERDAL [Concomitant]
     Indication: SCHIZOPHRENIA
     Dates: start: 19991101
  4. LEPTICUR [Concomitant]
     Dates: start: 19990101
  5. LAROXYL [Concomitant]
     Indication: DEPRESSION
     Dates: start: 19990101
  6. THERALENE [Concomitant]
     Indication: INSOMNIA
     Dates: start: 20050401

REACTIONS (3)
  - DELUSION [None]
  - DISSOCIATIVE DISORDER [None]
  - INSOMNIA [None]
